FAERS Safety Report 14917820 (Version 2)
Quarter: 2018Q2

REPORT INFORMATION
  Report Type: Spontaneous
  Country: DE (occurrence: DE)
  Receive Date: 20180521
  Receipt Date: 20180523
  Transmission Date: 20180711
  Serious: Yes (Hospitalization)
  Sender: FDA-Public Use
  Company Number: DE-CONCORDIA PHARMACEUTICALS INC.-E2B_00011739

PATIENT
  Age: 64 Year
  Sex: Male
  Weight: 75 kg

DRUGS (12)
  1. TAMSULOSIN BASICS 0,4MG [Concomitant]
     Dosage: 0.4 MG, 0-0-1-0, RETARD-KAPSELN
     Route: 048
  2. RAMILICH 5MG [Concomitant]
     Dosage: 5 MG, 0.5-0-0-0, TABLETTEN
     Route: 048
  3. XARELTO [Concomitant]
     Active Substance: RIVAROXABAN
     Dosage: 15 MG, 1-0-0-0, TABLETTEN
     Route: 048
  4. PREDNISOLONE. [Suspect]
     Active Substance: PREDNISOLONE
     Dosage: 5 MG, 1-0-0-0, TABLETTEN
     Route: 048
  5. NOVODIGAL [Concomitant]
     Dosage: 0.2 MG, 1-0-0-0, TABLETTEN
     Route: 048
  6. TORASEMID AL 5MG [Concomitant]
     Dosage: 5 MG, 2-1-0-0, TABLETTEN
     Route: 048
  7. SIMVASTATIN STADA 40MG [Concomitant]
     Dosage: 40 MG, 0-0-0-1, TABLETTEN
     Route: 048
  8. VIANI 50 UG/250 UG DISKUS [Concomitant]
     Dosage: 50|250 MICROG, 1-0-1-0, PULVER
     Route: 055
  9. PANTOPRAZOL-ACTAVIS 20MG [Concomitant]
     Dosage: 20 MG, 0-0-1-0, TABLETTEN
     Route: 048
  10. SPIRIVA 18 MIKROGRAMM [Concomitant]
     Dosage: 18 ?G, 1-0-0-0, KAPSELN
     Route: 048
  11. SALBUTAMOL-RATIOPHARM N DOSIERAEROSOL [Concomitant]
     Active Substance: ALBUTEROL
     Dosage: 0.12 MG, BEDARF, SPRAY
     Route: 055
  12. FLECAINID-1A PHARMA 100MG [Concomitant]
     Dosage: 100 MG, 0.5-0-0.5-0, TABLETTEN
     Route: 048

REACTIONS (10)
  - Pollakiuria [Unknown]
  - Dyspnoea [Unknown]
  - Cough [Unknown]
  - Hypertension [Unknown]
  - Thirst [Unknown]
  - Chest discomfort [Unknown]
  - General physical health deterioration [Unknown]
  - Steroid therapy [Unknown]
  - Pneumonia [Unknown]
  - Arrhythmia [Unknown]
